FAERS Safety Report 5479593-1 (Version None)
Quarter: 2007Q3

REPORT INFORMATION
  Report Type: 
  Country: None (occurrence: None)
  Receive Date: 20070910
  Receipt Date: 20070517
  Transmission Date: 20080115
  Serious: Yes (Hospitalization)
  Sender: FDA-Public Use
  Company Number: 37232

PATIENT
  Age: 59 Year
  Sex: Male
  Weight: 68 kg

DRUGS (1)
  1. ETOPOSIDE [Suspect]
     Indication: SMALL CELL LUNG CANCER STAGE UNSPECIFIED
     Dosage: 131 MG INTRAVENOUSLY ON DAYS  1
     Route: 042
     Dates: start: 20070326, end: 20070426

REACTIONS (3)
  - COUGH [None]
  - PYREXIA [None]
  - RESPIRATORY TRACT INFECTION [None]
